FAERS Safety Report 18532387 (Version 1)
Quarter: 2020Q4

REPORT INFORMATION
  Report Type: Spontaneous
  Country: GB (occurrence: GB)
  Receive Date: 20201123
  Receipt Date: 20201123
  Transmission Date: 20210114
  Serious: Yes (Other)
  Sender: FDA-Public Use
  Company Number: GB-TEVA-2020-GB-1850676

PATIENT
  Age: 24 Year
  Sex: Female
  Weight: 90.26 kg

DRUGS (8)
  1. DESOGESTREL [Concomitant]
     Active Substance: DESOGESTREL
  2. PROPANTHELINE BROMIDE. [Concomitant]
     Active Substance: PROPANTHELINE BROMIDE
  3. ALVERINE CITRATE [Concomitant]
     Active Substance: ALVERINE CITRATE
  4. QUETIAPINE. [Concomitant]
     Active Substance: QUETIAPINE
  5. TOPIRAMATE. [Suspect]
     Active Substance: TOPIRAMATE
     Indication: MIGRAINE
     Dosage: 25MILLIGRAM
     Route: 048
     Dates: start: 20201016, end: 20201024
  6. SUMATRIPTAN. [Concomitant]
     Active Substance: SUMATRIPTAN
  7. PROPRANOLOL HYDROCHLORIDE. [Concomitant]
     Active Substance: PROPRANOLOL HYDROCHLORIDE
  8. PAROXETINE. [Concomitant]
     Active Substance: PAROXETINE

REACTIONS (3)
  - Palpitations [Recovering/Resolving]
  - Dyspnoea [Unknown]
  - Tachycardia [Unknown]

NARRATIVE: CASE EVENT DATE: 20201022
